FAERS Safety Report 7158640-5 (Version None)
Quarter: 2010Q4

REPORT INFORMATION
  Report Type: 
  Country: None (occurrence: None)
  Receive Date: 20101214
  Receipt Date: 20100628
  Transmission Date: 20110411
  Serious: No
  Sender: FDA-Public Use
  Company Number: US-ASTRAZENECA-2010SE28611

PATIENT
  Age: 65 Year
  Sex: Male
  Weight: 88.5 kg

DRUGS (2)
  1. CRESTOR [Suspect]
     Route: 048
     Dates: start: 20060101, end: 20100601
  2. COZAAR [Concomitant]

REACTIONS (2)
  - DRUG DOSE OMISSION [None]
  - INSOMNIA [None]
